FAERS Safety Report 4625021-5 (Version None)
Quarter: 2005Q2

REPORT INFORMATION
  Report Type: 
  Country: None (occurrence: None)
  Receive Date: 20050325
  Receipt Date: 20050207
  Transmission Date: 20051028
  Serious: No
  Sender: FDA-Public Use
  Company Number: US_0502111953

PATIENT
  Age: 75 Year
  Sex: Female
  Weight: 70 kg

DRUGS (10)
  1. FORTEO [Suspect]
     Indication: OSTEOPOROSIS
     Dosage: 20 UG
     Dates: start: 20040601
  2. DIOVAN [Concomitant]
  3. COUMADIN [Concomitant]
  4. CARDIZEM [Concomitant]
  5. TRAMADOL [Concomitant]
  6. EXTRA STRENGTH TYLENOL [Concomitant]
  7. VITAMIN [Concomitant]
  8. GLUCOSAMINE [Concomitant]
  9. CHONDROITIN [Concomitant]
  10. OSCAL (CALCIUM CARBONATE) [Concomitant]

REACTIONS (5)
  - ABDOMINAL PAIN [None]
  - BODY HEIGHT DECREASED [None]
  - EAR INFECTION [None]
  - MUSCULOSKELETAL DISCOMFORT [None]
  - STOMACH DISCOMFORT [None]
